FAERS Safety Report 16324846 (Version 1)
Quarter: 2019Q2

REPORT INFORMATION
  Report Type: Spontaneous
  Country: US (occurrence: US)
  Receive Date: 20190411
  Receipt Date: 20190411
  Transmission Date: 20190711
  Serious: No
  Sender: FDA-Public Use
  Company Number: None

PATIENT
  Age: 48 Year
  Sex: Female
  Weight: 64.86 kg

DRUGS (4)
  1. FORTEO [Suspect]
     Active Substance: TERIPARATIDE
     Indication: OSTEOPOROTIC FRACTURE
     Dosage: ?          OTHER STRENGTH:600/2.4 UG/ML;?
     Route: 058
     Dates: start: 201707
  2. FORTEO [Suspect]
     Active Substance: TERIPARATIDE
     Indication: MONOCLONAL GAMMOPATHY
  3. FORTEO [Suspect]
     Active Substance: TERIPARATIDE
     Indication: CROHN^S DISEASE
  4. FORTEO [Suspect]
     Active Substance: TERIPARATIDE
     Indication: FELTY^S SYNDROME

REACTIONS (2)
  - Fall [None]
  - Hip fracture [None]
